FAERS Safety Report 9268301 (Version 2)
Quarter: 2013Q4

REPORT INFORMATION
  Report Type: Spontaneous
  Country: US (occurrence: US)
  Receive Date: 20130502
  Receipt Date: 20131009
  Transmission Date: 20140711
  Serious: Yes (Hospitalization)
  Sender: FDA-Public Use
  Company Number: US-B.I. PHARMACEUTICALS,INC./RIDGEFIELD-2013-BI-12005BP

PATIENT
  Sex: Male
  Weight: 90.72 kg

DRUGS (12)
  1. PRADAXA [Suspect]
     Indication: ANTICOAGULANT THERAPY
     Dates: start: 20110417, end: 20120118
  2. CARVEDILOL [Concomitant]
  3. FUROSEMIDE [Concomitant]
  4. GLIPIZIDE [Concomitant]
  5. LANTUS SOLOSTAR [Concomitant]
  6. ASCORBIC ACID [Concomitant]
  7. MULTIVITAMINS [Concomitant]
  8. NOVOLOG FLEXPEN [Concomitant]
  9. SIMVASTATIN [Concomitant]
  10. ASPIRIN [Concomitant]
  11. PLAVIX [Concomitant]
  12. VITAMIN D3 [Concomitant]

REACTIONS (2)
  - Gastrointestinal haemorrhage [Unknown]
  - Anaemia [Unknown]
